FAERS Safety Report 16018622 (Version 1)
Quarter: 2019Q1

REPORT INFORMATION
  Report Type: Spontaneous
  Country: US (occurrence: US)
  Receive Date: 20190228
  Receipt Date: 20190228
  Transmission Date: 20190418
  Serious: Yes (Other)
  Sender: FDA-Public Use
  Company Number: US-BAYER-2019-041309

PATIENT
  Sex: Male

DRUGS (3)
  1. GABAPENTIN. [Suspect]
     Active Substance: GABAPENTIN
     Dosage: UNK
  2. CELEBREX [Suspect]
     Active Substance: CELECOXIB
     Dosage: UNK
  3. MIRALAX [Suspect]
     Active Substance: POLYETHYLENE GLYCOL 3350
     Dosage: UNK

REACTIONS (11)
  - Adenomatous polyposis coli [Unknown]
  - Headache [Unknown]
  - Decreased appetite [Unknown]
  - Mass [Unknown]
  - Abdominal pain [Unknown]
  - Fall [None]
  - Speech disorder developmental [Unknown]
  - Neoplasm progression [Unknown]
  - Desmoid tumour [Unknown]
  - Pain [None]
  - Abnormal behaviour [Unknown]

NARRATIVE: CASE EVENT DATE: 201602
